FAERS Safety Report 16074337 (Version 1)
Quarter: 2019Q1

REPORT INFORMATION
  Report Type: Spontaneous
  Country: US (occurrence: US)
  Receive Date: 20190314
  Receipt Date: 20190314
  Transmission Date: 20190418
  Serious: No
  Sender: FDA-Public Use
  Company Number: US-HISAMITSU-2018-US-019492

PATIENT
  Age: 36 Year
  Sex: Female
  Weight: 70.31 kg

DRUGS (2)
  1. SALONPAS PAIN RELIEF [Suspect]
     Active Substance: MENTHOL\METHYL SALICYLATE
     Indication: ANALGESIC THERAPY
     Dosage: THREE PATCHES APPLIED TO BACK OF LEFT SHOULDER
     Route: 061
     Dates: start: 20181110, end: 20181110
  2. PROAIR HFA [Concomitant]
     Active Substance: ALBUTEROL SULFATE

REACTIONS (4)
  - Application site vesicles [Recovering/Resolving]
  - Application site pain [Recovered/Resolved]
  - Application site irritation [Recovering/Resolving]
  - Application site erythema [Recovering/Resolving]

NARRATIVE: CASE EVENT DATE: 20181110
